FAERS Safety Report 11736847 (Version 1)
Quarter: 2015Q4

REPORT INFORMATION
  Report Type: Spontaneous
  Country: US (occurrence: US)
  Receive Date: 20151113
  Receipt Date: 20151113
  Transmission Date: 20160304
  Serious: No
  Sender: FDA-Public Use
  Company Number: US-JNJFOC-20151005974

PATIENT
  Age: 86 Year
  Sex: Female
  Weight: 53.07 kg

DRUGS (2)
  1. IMODIUM MULTI-SYMPTOM RELIEF [Suspect]
     Active Substance: DIMETHICONE\LOPERAMIDE HYDROCHLORIDE
     Route: 048
  2. IMODIUM MULTI-SYMPTOM RELIEF [Suspect]
     Active Substance: DIMETHICONE\LOPERAMIDE HYDROCHLORIDE
     Indication: DIARRHOEA
     Dosage: DOSE: 1X DAILY FOR 7 DAYS
     Route: 048

REACTIONS (3)
  - Product size issue [Not Recovered/Not Resolved]
  - Product difficult to swallow [Not Recovered/Not Resolved]
  - Diarrhoea [Not Recovered/Not Resolved]
